FAERS Safety Report 9368973 (Version 1)
Quarter: 2013Q2

REPORT INFORMATION
  Report Type: Report from Study
  Country: DE (occurrence: DE)
  Receive Date: 20130626
  Receipt Date: 20130626
  Transmission Date: 20140414
  Serious: Yes (Hospitalization)
  Sender: FDA-Public Use
  Company Number: PHHO2013DE007020

PATIENT
  Age: 71 Year
  Sex: Male
  Weight: 81.9 kg

DRUGS (6)
  1. CERTICAN [Suspect]
     Indication: RENAL TRANSPLANT
     Dosage: 1.5-0-1.5 MG
     Dates: start: 20120620, end: 20130522
  2. MYFORTIC [Suspect]
     Indication: RENAL TRANSPLANT
     Dosage: 360 MG, TID
     Route: 048
     Dates: start: 20120412, end: 20130522
  3. SIMULECT [Suspect]
     Indication: RENAL TRANSPLANT
     Dosage: 20 MG, UNK
     Route: 042
     Dates: start: 20120412, end: 20120416
  4. SIMULECT [Suspect]
     Dosage: 20 UNK, UNK
     Route: 042
  5. PROGRAF [Suspect]
     Indication: RENAL TRANSPLANT
     Dosage: 2.5-0-2.5 MG
     Route: 048
     Dates: start: 20120412
  6. PREDNISON [Suspect]
     Indication: RENAL TRANSPLANT
     Dosage: 7.5-0-0 MG
     Route: 048
     Dates: start: 20120413

REACTIONS (1)
  - Pneumonitis [Recovered/Resolved]
